FAERS Safety Report 9473219 (Version 2)
Quarter: 2013Q3

REPORT INFORMATION
  Report Type: Spontaneous
  Country: US (occurrence: US)
  Receive Date: 20130823
  Receipt Date: 20130911
  Transmission Date: 20140515
  Serious: Yes (Hospitalization)
  Sender: FDA-Public Use
  Company Number: US-MERCK-1308USA009249

PATIENT
  Sex: Female

DRUGS (1)
  1. THERAPY UNSPECIFIED [Suspect]
     Route: 048

REACTIONS (1)
  - Mental disorder [Not Recovered/Not Resolved]
